FAERS Safety Report 6711153-4 (Version None)
Quarter: 2010Q2

REPORT INFORMATION
  Report Type: 
  Country: None (occurrence: None)
  Receive Date: 20100504
  Receipt Date: 20100504
  Transmission Date: 20101027
  Serious: Yes (Hospitalization)
  Sender: FDA-Public Use
  Company Number: None

PATIENT
  Age: 89 Year
  Sex: Female

DRUGS (2)
  1. BIAXIN [Suspect]
     Dosage: BIAXIN SHORT TERM
  2. ZOCOR [Suspect]
     Dosage: ZOCOR 80MG 1 DAILY
     Dates: start: 20000101

REACTIONS (1)
  - RHABDOMYOLYSIS [None]
